FAERS Safety Report 21928610 (Version 1)
Quarter: 2023Q1

REPORT INFORMATION
  Report Type: Spontaneous
  Country: US (occurrence: US)
  Receive Date: 20230130
  Receipt Date: 20230130
  Transmission Date: 20230418
  Serious: No
  Sender: FDA-Public Use
  Company Number: US-drreddys-SPO/USA/22/0159224

PATIENT
  Age: 88 Year
  Sex: Female

DRUGS (13)
  1. LENALIDOMIDE [Suspect]
     Active Substance: LENALIDOMIDE
     Indication: Plasma cell myeloma
     Dosage: ON DAYS 1-21 FOLLOWED BY 7 DAYS OFF EVERY 28 DAYS
     Route: 048
     Dates: start: 20220216
  2. METOPROLOL SUCCINATE [Concomitant]
     Active Substance: METOPROLOL SUCCINATE
     Indication: Product used for unknown indication
  3. ALENDRONATE [Concomitant]
     Active Substance: ALENDRONATE SODIUM
     Indication: Product used for unknown indication
  4. BIOTIN TAB 1000MCG [Concomitant]
     Indication: Product used for unknown indication
  5. CENTRUM SILV TAB [Concomitant]
     Indication: Product used for unknown indication
  6. DOCUSATE SOD CAP 250MG [Concomitant]
     Indication: Product used for unknown indication
  7. MELATONIN CAP 10MG [Concomitant]
     Indication: Product used for unknown indication
  8. VITAMIN D TAB 25 MCG [Concomitant]
     Indication: Product used for unknown indication
  9. EUTHYROX TAB 150MCG [Concomitant]
     Indication: Product used for unknown indication
  10. LOSARTAN POT TAB 25MG [Concomitant]
     Indication: Product used for unknown indication
  11. SUCRALFATE TAB 1GM [Concomitant]
     Indication: Product used for unknown indication
  12. ACYCLOVIR [Concomitant]
     Active Substance: ACYCLOVIR
     Indication: Product used for unknown indication
  13. ELIQUIS [Concomitant]
     Active Substance: APIXABAN
     Indication: Product used for unknown indication

REACTIONS (4)
  - Loose tooth [Not Recovered/Not Resolved]
  - Incontinence [Not Recovered/Not Resolved]
  - Skin ulcer [Not Recovered/Not Resolved]
  - Fall [Not Recovered/Not Resolved]
